FAERS Safety Report 19477562 (Version 1)
Quarter: 2021Q2

REPORT INFORMATION
  Report Type: Spontaneous
  Country: US (occurrence: US)
  Receive Date: 20210630
  Receipt Date: 20210630
  Transmission Date: 20210717
  Serious: No
  Sender: FDA-Public Use
  Company Number: US-ORGANON-O2106USA001905

PATIENT
  Sex: Female

DRUGS (2)
  1. FOLLISTIM AQ [Suspect]
     Active Substance: FOLLITROPIN
     Indication: INFERTILITY
     Dosage: UPTO 450 UNITS, QD, STRENGTH: 300 INTERNATIONAL UNIT (IU)/0.36 MILLILITER (ML)
     Route: 058
     Dates: start: 20210406
  2. PROGESTERONE IN OIL [Suspect]
     Active Substance: PROGESTERONE
     Dosage: UNK
     Dates: start: 2021

REACTIONS (1)
  - Urticaria [Unknown]

NARRATIVE: CASE EVENT DATE: 2021
